FAERS Safety Report 20580217 (Version 35)
Quarter: 2024Q1

REPORT INFORMATION
  Report Type: Spontaneous
  Country: CA (occurrence: CA)
  Receive Date: 20220310
  Receipt Date: 20240221
  Transmission Date: 20240410
  Serious: Yes (Other)
  Sender: FDA-Public Use
  Company Number: CA-CELLTRION INC.-2020CA031898

PATIENT

DRUGS (36)
  1. INFLECTRA [Suspect]
     Active Substance: INFLIXIMAB-DYYB
     Indication: Colitis ulcerative
     Dosage: 400 MG, EVERY 0,2, 6 WEEKS, THEN EVERY 8 WEEKS (WEEK 0 DOSE)
     Route: 042
     Dates: start: 20200925
  2. INFLECTRA [Suspect]
     Active Substance: INFLIXIMAB-DYYB
     Dosage: 400 MG, EVERY 0,2, 6 WEEKS, THEN EVERY 8 WEEKS WEEK 2 DOSE, EVERY 4 WEEKS (WEEK 2 DOSE)
     Route: 042
     Dates: start: 20201009
  3. INFLECTRA [Suspect]
     Active Substance: INFLIXIMAB-DYYB
     Dosage: 400 MG, EVERY 0,2, 6 WEEKS, THEN EVERY 8 WEEKS (WEEK 6 DOSE)
     Route: 042
     Dates: start: 20201106
  4. INFLECTRA [Suspect]
     Active Substance: INFLIXIMAB-DYYB
     Dosage: 400 MG, AFTER 9 WEEKS (PRESCRIBED INFUSIONS EVERY 4 WEEKS)
     Route: 042
     Dates: start: 20210105
  5. INFLECTRA [Suspect]
     Active Substance: INFLIXIMAB-DYYB
     Dosage: 400 MG, EVERY 0,2, 6 WEEKS, THEN EVERY 8 WEEKS
     Route: 042
     Dates: start: 20210202
  6. INFLECTRA [Suspect]
     Active Substance: INFLIXIMAB-DYYB
     Dosage: 400 MG, EVERY 0,2, 6 WEEKS, THEN EVERY 8 WEEKS
     Route: 042
     Dates: start: 20210302
  7. INFLECTRA [Suspect]
     Active Substance: INFLIXIMAB-DYYB
     Dosage: 400 MG, EVERY 0,2, 6 WEEKS, THEN EVERY 8 WEEKS
     Route: 042
     Dates: start: 20210329
  8. INFLECTRA [Suspect]
     Active Substance: INFLIXIMAB-DYYB
     Dosage: 400 MG, EVERY 0,2, 6 WEEKS, THEN EVERY 8 WEEKS
     Route: 042
     Dates: start: 20210329
  9. INFLECTRA [Suspect]
     Active Substance: INFLIXIMAB-DYYB
     Dosage: 400 MG, EVERY 0,2, 6 WEEKS, THEN EVERY 8 WEEKS
     Route: 042
     Dates: start: 20210427
  10. INFLECTRA [Suspect]
     Active Substance: INFLIXIMAB-DYYB
     Dosage: 400 MG, EVERY 0,2, 6 WEEKS, THEN EVERY 8 WEEKS
     Route: 042
     Dates: start: 20210525
  11. INFLECTRA [Suspect]
     Active Substance: INFLIXIMAB-DYYB
     Dosage: 400 MG, EVERY 0,2, 6 WEEKS, THEN EVERY 8 WEEKS
     Route: 042
     Dates: start: 20210622
  12. INFLECTRA [Suspect]
     Active Substance: INFLIXIMAB-DYYB
     Dosage: 400 MG, EVERY 0,2, 6 WEEKS, THEN EVERY 8 WEEKS
     Route: 042
     Dates: start: 20210721
  13. INFLECTRA [Suspect]
     Active Substance: INFLIXIMAB-DYYB
     Dosage: 400 MG, EVERY 0,2, 6 WEEKS, THEN EVERY 8 WEEKS
     Route: 042
     Dates: start: 20210825
  14. INFLECTRA [Suspect]
     Active Substance: INFLIXIMAB-DYYB
     Dosage: 400 MG, EVERY 4 WEEKS
     Route: 042
     Dates: start: 20210915
  15. INFLECTRA [Suspect]
     Active Substance: INFLIXIMAB-DYYB
     Dosage: 400 MG, EVERY 4 WEEKS
     Route: 042
     Dates: start: 20211014
  16. INFLECTRA [Suspect]
     Active Substance: INFLIXIMAB-DYYB
     Dosage: 400 MG, EVERY 4 WEEKS
     Route: 042
     Dates: start: 20211108
  17. INFLECTRA [Suspect]
     Active Substance: INFLIXIMAB-DYYB
     Dosage: 400 MG, EVERY 4 WEEKS
     Route: 042
     Dates: start: 20220131
  18. INFLECTRA [Suspect]
     Active Substance: INFLIXIMAB-DYYB
     Dosage: 400 MG, EVERY 4 WEEKS
     Route: 042
     Dates: start: 20220228
  19. INFLECTRA [Suspect]
     Active Substance: INFLIXIMAB-DYYB
     Dosage: 400 MG, EVERY 4 WEEKS
     Route: 042
     Dates: start: 20220416
  20. INFLECTRA [Suspect]
     Active Substance: INFLIXIMAB-DYYB
     Dosage: 400 MG, EVERY 4 WEEKS
     Route: 042
     Dates: start: 20220516
  21. INFLECTRA [Suspect]
     Active Substance: INFLIXIMAB-DYYB
     Dosage: 400 MG, EVERY 4 WEEKS
     Route: 042
     Dates: start: 20220611
  22. INFLECTRA [Suspect]
     Active Substance: INFLIXIMAB-DYYB
     Dosage: 400 MG, EVERY 4 WEEKS
     Route: 042
     Dates: start: 20220903
  23. INFLECTRA [Suspect]
     Active Substance: INFLIXIMAB-DYYB
     Dosage: 400 MG, EVERY 4 WEEKS
     Route: 042
     Dates: start: 20221001
  24. INFLECTRA [Suspect]
     Active Substance: INFLIXIMAB-DYYB
     Dosage: 400 MG, EVERY 4 WEEKS
     Route: 042
     Dates: start: 20230109
  25. INFLECTRA [Suspect]
     Active Substance: INFLIXIMAB-DYYB
     Dosage: 400 MG, EVERY 4 WEEKS
     Route: 042
     Dates: start: 20230204
  26. INFLECTRA [Suspect]
     Active Substance: INFLIXIMAB-DYYB
     Dosage: 400 MG, EVERY 4 WEEKS
     Route: 042
     Dates: start: 20230401
  27. INFLECTRA [Suspect]
     Active Substance: INFLIXIMAB-DYYB
     Dosage: 400 MG, EVERY 4 WEEKS
     Route: 042
     Dates: start: 20230429
  28. INFLECTRA [Suspect]
     Active Substance: INFLIXIMAB-DYYB
     Dosage: 400 MG,  AFTER 23 WEEKS AND 3 DAYS (PRESCRIBED WAS EVERY 4 WEEKS)
     Route: 042
     Dates: start: 20231010, end: 20231010
  29. INFLECTRA [Suspect]
     Active Substance: INFLIXIMAB-DYYB
     Dosage: 400 MG, EVERY 4 WEEKS
     Route: 042
     Dates: start: 20231115
  30. INFLECTRA [Suspect]
     Active Substance: INFLIXIMAB-DYYB
     Dosage: 900 MG, EVERY 4 WEEKS
     Route: 042
     Dates: start: 20231213
  31. ASACOL [Concomitant]
     Active Substance: MESALAMINE
     Dosage: UNK
     Route: 065
  32. ASACOL [Concomitant]
     Active Substance: MESALAMINE
     Dosage: 1 DF
     Route: 065
  33. PREDNISONE [Concomitant]
     Active Substance: PREDNISONE
     Dosage: UNK
     Route: 065
  34. PREDNISONE [Concomitant]
     Active Substance: PREDNISONE
     Dosage: 1 DF
     Route: 065
  35. MESALAMINE [Concomitant]
     Active Substance: MESALAMINE
     Dosage: UNK
     Route: 054
  36. MESALAMINE [Concomitant]
     Active Substance: MESALAMINE
     Dosage: 1 DF
     Route: 054

REACTIONS (23)
  - Pneumonia [Recovered/Resolved]
  - Sinusitis bacterial [Recovering/Resolving]
  - Pharyngitis streptococcal [Not Recovered/Not Resolved]
  - Lower respiratory tract infection [Recovered/Resolved]
  - Condition aggravated [Not Recovered/Not Resolved]
  - Drug level decreased [Unknown]
  - Malaise [Recovered/Resolved]
  - Cough [Not Recovered/Not Resolved]
  - Inflammation [Not Recovered/Not Resolved]
  - Illness [Not Recovered/Not Resolved]
  - Productive cough [Recovering/Resolving]
  - Dysphonia [Not Recovered/Not Resolved]
  - Tooth infection [Not Recovered/Not Resolved]
  - Dyspnoea [Unknown]
  - Pain [Unknown]
  - Nasopharyngitis [Unknown]
  - Treatment noncompliance [Unknown]
  - Maternal exposure during pregnancy [Unknown]
  - Off label use [Unknown]
  - Off label use [Unknown]
  - Off label use [Unknown]
  - Intentional product use issue [Unknown]
  - Inappropriate schedule of product administration [Unknown]

NARRATIVE: CASE EVENT DATE: 20201009
